FAERS Safety Report 25254868 (Version 1)
Quarter: 2025Q2

REPORT INFORMATION
  Report Type: Spontaneous
  Country: US (occurrence: None)
  Receive Date: 20250430
  Receipt Date: 20250430
  Transmission Date: 20250717
  Serious: Yes (Hospitalization)
  Sender: FDA-CTU
  Company Number: None

PATIENT
  Age: 65 Year
  Sex: Female
  Weight: 79.4 kg

DRUGS (1)
  1. FEMARA [Suspect]
     Active Substance: LETROZOLE
     Dates: end: 20250121

REACTIONS (4)
  - Pneumonia aspiration [None]
  - Regurgitation [None]
  - Pneumonia [None]
  - Oesophageal dilatation [None]

NARRATIVE: CASE EVENT DATE: 20250122
